FAERS Safety Report 6695870-0 (Version None)
Quarter: 2010Q2

REPORT INFORMATION
  Report Type: 
  Country: None (occurrence: None)
  Receive Date: 20100426
  Receipt Date: 20091002
  Transmission Date: 20101027
  Serious: No
  Sender: FDA-Public Use
  Company Number: A0810640A

PATIENT

DRUGS (1)
  1. ZOFRAN [Suspect]
     Indication: GASTRIC DISORDER
     Route: 048

REACTIONS (2)
  - THERAPEUTIC RESPONSE DECREASED [None]
  - VOMITING [None]
